FAERS Safety Report 7827382-2 (Version None)
Quarter: 2011Q4

REPORT INFORMATION
  Report Type: 
  Country: None (occurrence: None)
  Receive Date: 20111020
  Receipt Date: 20111017
  Transmission Date: 20120403
  Serious: Yes (Death)
  Sender: FDA-Public Use
  Company Number: FR-BRISTOL-MYERS SQUIBB COMPANY-15223266

PATIENT
  Age: 60 Year
  Sex: Female

DRUGS (1)
  1. ORENCIA [Suspect]
     Dosage: RECEIVING FOR MORE THAN 1YR LAST INF:AUG2011,NO OF INF: AROUND 12
     Dates: end: 20070101

REACTIONS (1)
  - SUDDEN DEATH [None]
